FAERS Safety Report 15279009 (Version 4)
Quarter: 2019Q3

REPORT INFORMATION
  Report Type: Spontaneous
  Country: FR (occurrence: FR)
  Receive Date: 20180815
  Receipt Date: 20190923
  Transmission Date: 20191004
  Serious: Yes (Hospitalization)
  Sender: FDA-Public Use
  Company Number: FR-B.I. PHARMACEUTICALS,INC./RIDGEFIELD-2018-BI-040483

PATIENT
  Age: 73 Year
  Sex: Female
  Weight: 74 kg

DRUGS (8)
  1. GILOTRIF [Suspect]
     Active Substance: AFATINIB
     Route: 048
     Dates: start: 201807
  2. GILOTRIF [Suspect]
     Active Substance: AFATINIB
     Indication: LUNG NEOPLASM MALIGNANT
     Route: 048
     Dates: start: 201806, end: 201806
  3. KARDEGIC [Concomitant]
     Active Substance: ASPIRIN DL-LYSINE
     Indication: PRODUCT USED FOR UNKNOWN INDICATION
     Route: 065
  4. TENORMINE [Concomitant]
     Active Substance: ATENOLOL
     Indication: PRODUCT USED FOR UNKNOWN INDICATION
     Dosage: FORM STRENGTH: 50
     Route: 065
  5. GILOTRIF [Suspect]
     Active Substance: AFATINIB
     Indication: EGFR GENE MUTATION
     Route: 048
     Dates: start: 201712
  6. GILOTRIF [Suspect]
     Active Substance: AFATINIB
     Route: 048
     Dates: start: 201907
  7. LEXOMIL [Concomitant]
     Active Substance: BROMAZEPAM
     Indication: PRODUCT USED FOR UNKNOWN INDICATION
     Route: 065
  8. GILOTRIF [Suspect]
     Active Substance: AFATINIB
     Indication: MEDIASTINUM NEOPLASM
     Route: 048
     Dates: start: 201709

REACTIONS (34)
  - Musculoskeletal pain [Recovered/Resolved]
  - Muscle spasms [Recovered/Resolved]
  - Ingrowing nail [Recovered/Resolved]
  - Skin fissures [Recovered/Resolved]
  - Mouth ulceration [Recovered/Resolved]
  - Localised infection [Recovered/Resolved]
  - Limb discomfort [Recovered/Resolved]
  - Cystitis [Not Recovered/Not Resolved]
  - Abdominal pain [Not Recovered/Not Resolved]
  - Constipation [Recovered/Resolved]
  - Hyperhidrosis [Not Recovered/Not Resolved]
  - Weight decreased [Recovered/Resolved]
  - Nail disorder [Recovered/Resolved]
  - Bone lesion [Recovered/Resolved]
  - Epistaxis [Not Recovered/Not Resolved]
  - Diverticulum [Recovered/Resolved]
  - Skin fissures [Recovered/Resolved]
  - Breast pain [Unknown]
  - Epistaxis [Not Recovered/Not Resolved]
  - Weight decreased [Recovered/Resolved]
  - Fungal infection [Recovered/Resolved]
  - Erythema [Recovered/Resolved]
  - Onychoclasis [Recovered/Resolved]
  - Skin exfoliation [Recovered/Resolved]
  - Thrombosis [Recovered/Resolved]
  - Diarrhoea [Recovered/Resolved]
  - Fatigue [Not Recovered/Not Resolved]
  - Mastitis [Unknown]
  - Decreased appetite [Recovered/Resolved]
  - Hot flush [Recovered/Resolved]
  - Rhinorrhoea [Not Recovered/Not Resolved]
  - Diarrhoea [Recovered/Resolved]
  - Abdominal pain upper [Not Recovered/Not Resolved]
  - Urinary tract infection [Not Recovered/Not Resolved]

NARRATIVE: CASE EVENT DATE: 201709
